FAERS Safety Report 4528030-X (Version None)
Quarter: 2004Q4

REPORT INFORMATION
  Report Type: 
  Country: None (occurrence: None)
  Receive Date: 20041123
  Receipt Date: 20040616
  Transmission Date: 20050328
  Serious: Yes (Hospitalization, Other)
  Sender: FDA-Public Use
  Company Number: 2004022902

PATIENT
  Age: 56 Year
  Sex: Female
  Weight: 68.0396 kg

DRUGS (7)
  1. LIPITOR [Suspect]
     Indication: BLOOD CHOLESTEROL INCREASED
     Dosage: 10 MG (DAILY), ORAL
     Route: 048
     Dates: start: 20030101
  2. METHADONE (METHADONE) [Concomitant]
  3. LEVOTHYROXINE SODIUM [Concomitant]
  4. NAPROXEN SODIUM [Concomitant]
  5. OESTRANORM (ESTRADIOL, NORETHISTERONE) [Concomitant]
  6. NORETHISTERONE (NORETHISTERONE) [Concomitant]
  7. ASPIRIN [Concomitant]

REACTIONS (3)
  - ANXIETY [None]
  - CHEST PAIN [None]
  - VIRAL INFECTION [None]
